FAERS Safety Report 6251327-2 (Version None)
Quarter: 2009Q2

REPORT INFORMATION
  Report Type: 
  Country: None (occurrence: None)
  Receive Date: 20090630
  Receipt Date: 20090623
  Transmission Date: 20091009
  Serious: Yes (Hospitalization, Congenital Anomaly)
  Sender: FDA-Public Use
  Company Number: A0680428A

PATIENT
  Sex: Male
  Weight: 3.3 kg

DRUGS (2)
  1. PAXIL [Suspect]
     Indication: DEPRESSION
     Dosage: 30MG PER DAY
     Dates: start: 20010301, end: 20011201
  2. VITAMIN TAB [Concomitant]

REACTIONS (7)
  - ATRIAL SEPTAL DEFECT [None]
  - CARDIAC MURMUR [None]
  - DRUG EXPOSURE DURING PREGNANCY [None]
  - PATENT DUCTUS ARTERIOSUS [None]
  - PERSISTENT FOETAL CIRCULATION [None]
  - RIGHT ATRIAL DILATATION [None]
  - TRICUSPID VALVE DISEASE [None]
